FAERS Safety Report 10888530 (Version 1)
Quarter: 2015Q1

REPORT INFORMATION
  Report Type: Report from Study
  Country: AU (occurrence: AU)
  Receive Date: 20150305
  Receipt Date: 20150305
  Transmission Date: 20150721
  Serious: Yes (Hospitalization, Other)
  Sender: FDA-Public Use
  Company Number: AU-ABBVIE-15K-008-1341737-00

PATIENT
  Age: 50 Year
  Sex: Male

DRUGS (2)
  1. HUMIRA [Suspect]
     Active Substance: ADALIMUMAB
     Indication: PSORIASIS
     Route: 065
     Dates: end: 20150105
  2. HUMIRA [Suspect]
     Active Substance: ADALIMUMAB
     Route: 065

REACTIONS (10)
  - Pain in extremity [Recovering/Resolving]
  - Pain in jaw [Recovering/Resolving]
  - Coronary artery stenosis [Recovering/Resolving]
  - Dyspnoea [Recovering/Resolving]
  - Pleural effusion [Unknown]
  - Wound [Unknown]
  - Impaired healing [Unknown]
  - Cardiac disorder [Unknown]
  - Chest pain [Recovering/Resolving]
  - Wound infection staphylococcal [Unknown]

NARRATIVE: CASE EVENT DATE: 20150105
